FAERS Safety Report 5848853-4 (Version None)
Quarter: 2008Q3

REPORT INFORMATION
  Report Type: 
  Country: None (occurrence: None)
  Receive Date: 20080818
  Receipt Date: 20080806
  Transmission Date: 20090109
  Serious: Yes (Hospitalization, Other)
  Sender: FDA-Public Use
  Company Number: JP-PFIZER INC-2008054646

PATIENT
  Sex: Female
  Weight: 49 kg

DRUGS (7)
  1. GABAPEN [Suspect]
     Indication: EPILEPSY
     Route: 048
     Dates: start: 20070801, end: 20080606
  2. TEGRETOL [Suspect]
     Indication: EPILEPSY
     Dosage: DAILY DOSE:800MG
     Route: 048
     Dates: start: 20070801, end: 20080521
  3. EXCEGRAN [Suspect]
     Indication: EPILEPSY
     Route: 048
     Dates: start: 20070801, end: 20080521
  4. MERCAZOLE [Concomitant]
     Route: 048
  5. NORVASC [Concomitant]
     Route: 048
  6. VALSARTAN [Concomitant]
     Route: 048
  7. WARFARIN SODIUM [Concomitant]
     Route: 048
     Dates: start: 20070801

REACTIONS (4)
  - ALOPECIA [None]
  - DRUG ERUPTION [None]
  - FLUSHING [None]
  - PRURITUS [None]
